FAERS Safety Report 10897456 (Version 2)
Quarter: 2015Q2

REPORT INFORMATION
  Report Type: Spontaneous
  Country: SE (occurrence: SE)
  Receive Date: 20150309
  Receipt Date: 20150416
  Transmission Date: 20150821
  Serious: Yes (Hospitalization, Other)
  Sender: FDA-Public Use
  Company Number: SE-ASTELLAS-2015US006716

PATIENT
  Age: 81 Year
  Sex: Female
  Weight: 50 kg

DRUGS (2)
  1. BETMIGA [Suspect]
     Active Substance: MIRABEGRON
     Route: 065
  2. BETMIGA [Suspect]
     Active Substance: MIRABEGRON
     Indication: PRODUCT USED FOR UNKNOWN INDICATION
     Route: 048
     Dates: start: 20141010, end: 20141212

REACTIONS (2)
  - Road traffic accident [Unknown]
  - Atrial fibrillation [Recovered/Resolved]

NARRATIVE: CASE EVENT DATE: 20141212
